FAERS Safety Report 8589422-5 (Version None)
Quarter: 2012Q3

REPORT INFORMATION
  Report Type: 
  Country: None (occurrence: None)
  Receive Date: 20120813
  Receipt Date: 20120802
  Transmission Date: 20120928
  Serious: Yes (Hospitalization, Other)
  Sender: FDA-Public Use
  Company Number: FR-ASTRAZENECA-2012SE49932

PATIENT
  Age: 14635 Day
  Sex: Male
  Weight: 57 kg

DRUGS (12)
  1. LORAZEPAM [Concomitant]
     Route: 048
     Dates: start: 20111108
  2. DUPHALAC [Concomitant]
     Route: 048
     Dates: start: 20110314
  3. RISPERDAL [Concomitant]
     Route: 048
     Dates: start: 20120214, end: 20120629
  4. SEROQUEL [Suspect]
     Route: 048
     Dates: start: 20120629, end: 20120702
  5. DEPAKENE [Concomitant]
     Route: 048
     Dates: start: 20091116
  6. LEPTICUR [Concomitant]
     Route: 048
     Dates: start: 20110303
  7. SEROQUEL [Suspect]
     Indication: PSYCHOTIC DISORDER
     Route: 048
     Dates: start: 20120626, end: 20120628
  8. NOZINAN [Suspect]
     Indication: PSYCHOTIC DISORDER
     Route: 048
     Dates: start: 20120629, end: 20120702
  9. DEBRIDAT [Concomitant]
     Route: 048
     Dates: start: 20110314
  10. TRANSIPEG [Concomitant]
     Route: 048
     Dates: start: 20110408
  11. NICOBION [Concomitant]
     Route: 048
     Dates: start: 20120509
  12. LOXAPINE HCL [Concomitant]
     Route: 048
     Dates: end: 20120626

REACTIONS (9)
  - HYPOTONIA [None]
  - DIZZINESS [None]
  - INFLAMMATION [None]
  - HALLUCINATION [None]
  - AGITATION [None]
  - HYPOTENSION [None]
  - DYSPHAGIA [None]
  - ASTHENIA [None]
  - HYPOTHERMIA [None]
